FAERS Safety Report 5104680-7 (Version None)
Quarter: 2006Q3

REPORT INFORMATION
  Report Type: 
  Country: None (occurrence: None)
  Receive Date: 20060912
  Receipt Date: 20060912
  Transmission Date: 20061208
  Serious: Yes (Hospitalization)
  Sender: FDA-Public Use
  Company Number: None

PATIENT
  Age: 59 Year
  Sex: Male
  Weight: 80.7403 kg

DRUGS (18)
  1. OXANDRIN [Suspect]
     Indication: WEIGHT DECREASED
     Dosage: 10 MG BID PO
     Route: 048
     Dates: start: 20060603
  2. VICODIN [Concomitant]
  3. BUTALBITAL [Concomitant]
  4. WELLBUTRIN SR [Concomitant]
  5. FLOMAX [Concomitant]
  6. MORPHINE [Concomitant]
  7. ATENOLOL [Concomitant]
  8. LIPITOR [Concomitant]
  9. PRILOSEC [Concomitant]
  10. SENOKOT [Concomitant]
  11. PERCOCET [Concomitant]
  12. NEXIUM [Concomitant]
  13. PHENERGAN [Concomitant]
  14. XANAX [Concomitant]
  15. CARBOPLATIN [Concomitant]
  16. PACLITAXEL [Concomitant]
  17. AVASTIN [Concomitant]
  18. ALOXI [Concomitant]

REACTIONS (7)
  - ALANINE AMINOTRANSFERASE INCREASED [None]
  - ASPARTATE AMINOTRANSFERASE INCREASED [None]
  - BLOOD BILIRUBIN INCREASED [None]
  - DYSPNOEA [None]
  - NAUSEA [None]
  - PNEUMONIA [None]
  - VOMITING [None]
